FAERS Safety Report 16352357 (Version 1)
Quarter: 2019Q2

REPORT INFORMATION
  Report Type: Spontaneous
  Country: CN (occurrence: CN)
  Receive Date: 20190524
  Receipt Date: 20190524
  Transmission Date: 20190711
  Serious: Yes (Other)
  Sender: FDA-Public Use
  Company Number: CN-PFIZER INC-2019221141

PATIENT
  Age: 8 Year
  Sex: Female
  Weight: 29 kg

DRUGS (3)
  1. ROCEPHIN [Concomitant]
     Active Substance: CEFTRIAXONE SODIUM
     Indication: PNEUMONIA
     Dosage: 1.5 G, 1X/DAY
     Route: 041
     Dates: start: 20190513, end: 20190513
  2. ZITHROMAX [Suspect]
     Active Substance: AZITHROMYCIN DIHYDRATE
     Indication: PNEUMONIA
     Dosage: 0.29 G, 1X/DAY
     Route: 041
     Dates: start: 20190508, end: 20190513
  3. SOLU-MEDROL [Concomitant]
     Active Substance: METHYLPREDNISOLONE SODIUM SUCCINATE
     Indication: PNEUMONIA
     Dosage: 40 MG, 1X/DAY
     Route: 041
     Dates: start: 20190513, end: 20190513

REACTIONS (5)
  - Pruritus [Recovering/Resolving]
  - Tachypnoea [Recovering/Resolving]
  - Off label use [Unknown]
  - Rash [Recovering/Resolving]
  - Product use issue [Unknown]

NARRATIVE: CASE EVENT DATE: 20190508
